FAERS Safety Report 8940397 (Version 3)
Quarter: 2013Q1

REPORT INFORMATION
  Report Type: Spontaneous
  Country: US (occurrence: US)
  Receive Date: 20121203
  Receipt Date: 20130124
  Transmission Date: 20140127
  Serious: Yes (Death, Other)
  Sender: FDA-Public Use
  Company Number: US-CELGENEUS-163-21880-12113669

PATIENT
  Age: 79 None
  Sex: Male

DRUGS (2)
  1. REVLIMID [Suspect]
     Indication: PLASMA CELL MYELOMA
     Dosage: 25 MILLIGRAM
     Route: 048
     Dates: start: 201107, end: 2011
  2. REVLIMID [Suspect]
     Dosage: 25 MILLIGRAM
     Route: 048
     Dates: start: 201210, end: 2012

REACTIONS (5)
  - Sepsis [Fatal]
  - Coma [Not Recovered/Not Resolved]
  - Convulsion [Not Recovered/Not Resolved]
  - Aphasia [Not Recovered/Not Resolved]
  - Tremor [Not Recovered/Not Resolved]
